FAERS Safety Report 6979926-0 (Version None)
Quarter: 2010Q3

REPORT INFORMATION
  Report Type: 
  Country: None (occurrence: None)
  Receive Date: 20100914
  Receipt Date: 20100903
  Transmission Date: 20110219
  Serious: No
  Sender: FDA-Public Use
  Company Number: US-US-EMD SERONO, INC.-7015654

PATIENT
  Sex: Male

DRUGS (4)
  1. REBIF [Suspect]
     Indication: MULTIPLE SCLEROSIS
     Route: 058
     Dates: start: 20100816, end: 20100827
  2. REBIF [Suspect]
     Route: 058
     Dates: start: 20100827, end: 20100801
  3. TYLENOL [Concomitant]
     Indication: PREMEDICATION
  4. NEURONTIN [Concomitant]
     Indication: NEURALGIA

REACTIONS (3)
  - CARDIAC FLUTTER [None]
  - HEART RATE IRREGULAR [None]
  - INFLUENZA LIKE ILLNESS [None]
